FAERS Safety Report 6296154-5 (Version None)
Quarter: 2009Q3

REPORT INFORMATION
  Report Type: 
  Country: None (occurrence: None)
  Receive Date: 20090803
  Receipt Date: 20090803
  Transmission Date: 20100115
  Serious: Yes (Life-Threatening, Hospitalization, Other)
  Sender: FDA-Public Use
  Company Number: None

PATIENT
  Age: 38 Year
  Sex: Male
  Weight: 108.8633 kg

DRUGS (1)
  1. SLIM XTREME 1-3 CAPSULES PER ANABOLIC XTREME DAY -PROPRIETARY- [Suspect]
     Indication: WEIGHT CONTROL
     Dosage: 1 CAPSULE TWICE PER DAY PO
     Route: 048
     Dates: start: 20090310, end: 20090507

REACTIONS (6)
  - DELUSION [None]
  - DRUG WITHDRAWAL SYNDROME [None]
  - HYPOPHAGIA [None]
  - INSOMNIA [None]
  - MANIA [None]
  - PSYCHOTIC DISORDER [None]
